FAERS Safety Report 7772407-6 (Version None)
Quarter: 2011Q3

REPORT INFORMATION
  Report Type: 
  Country: None (occurrence: None)
  Receive Date: 20110922
  Receipt Date: 20110913
  Transmission Date: 20111222
  Serious: Yes (Hospitalization)
  Sender: FDA-Public Use
  Company Number: US-ASTRAZENECA-2011SE51199

PATIENT
  Age: 51 Year
  Sex: Male

DRUGS (1)
  1. RHINOCORT [Suspect]
     Route: 045

REACTIONS (4)
  - BEDRIDDEN [None]
  - OEDEMA PERIPHERAL [None]
  - OFF LABEL USE [None]
  - MUSCLE SPASMS [None]
